FAERS Safety Report 6833902-7 (Version None)
Quarter: 2010Q3

REPORT INFORMATION
  Report Type: 
  Country: None (occurrence: None)
  Receive Date: 20100712
  Receipt Date: 20070402
  Transmission Date: 20110219
  Serious: Yes (Other)
  Sender: FDA-Public Use
  Company Number: US-PFIZER INC-2007027799

PATIENT
  Sex: Female
  Weight: 83.9 kg

DRUGS (8)
  1. CHANTIX [Suspect]
     Indication: SMOKING CESSATION THERAPY
     Dates: start: 20070328
  2. METFORMIN HCL [Suspect]
     Indication: DIABETES MELLITUS
     Dates: start: 20060101
  3. KLONOPIN [Concomitant]
  4. NEXIUM [Concomitant]
  5. LOTREL [Concomitant]
  6. ATENOLOL [Concomitant]
  7. HAIR NUTRITION [Concomitant]
  8. AMARYL [Concomitant]

REACTIONS (6)
  - BLOOD GLUCOSE INCREASED [None]
  - BRONCHITIS [None]
  - INSOMNIA [None]
  - MALAISE [None]
  - NIGHTMARE [None]
  - PYREXIA [None]
